FAERS Safety Report 8439537-7 (Version None)
Quarter: 2012Q2

REPORT INFORMATION
  Report Type: 
  Country: None (occurrence: None)
  Receive Date: 20120615
  Receipt Date: 20120608
  Transmission Date: 20120825
  Serious: No
  Sender: FDA-Public Use
  Company Number: US-B.I. PHARMACEUTICALS,INC./RIDGEFIELD-2012-BP-13346BP

PATIENT
  Age: 72 Year
  Sex: Male

DRUGS (16)
  1. LIPITOR [Concomitant]
  2. DUONEB [Concomitant]
  3. ROBAXIN [Concomitant]
  4. ZESTRIL [Concomitant]
  5. NEURONTIN [Concomitant]
  6. NOVOLOG [Concomitant]
  7. SPIRIVA [Concomitant]
  8. LASIX [Concomitant]
  9. PLAVIX [Concomitant]
  10. NEXIUM [Concomitant]
  11. LORTAB [Concomitant]
  12. LANTUS [Concomitant]
  13. LOVAZA [Concomitant]
  14. TRADJENTA [Suspect]
     Dosage: 5 MG
  15. ASPIRIN [Concomitant]
  16. TOPROL-XL [Concomitant]

REACTIONS (1)
  - PANCREATITIS [None]
